FAERS Safety Report 10314605 (Version 2)
Quarter: 2014Q3

REPORT INFORMATION
  Report Type: Spontaneous
  Country: US (occurrence: None)
  Receive Date: 20140717
  Receipt Date: 20140722
  Transmission Date: 20150326
  Serious: Yes (Other)
  Sender: FDA-Public Use
  Company Number: SYM-2014-23056

PATIENT
  Age: 69 Year
  Sex: Female

DRUGS (5)
  1. ACICLOVIR (ACICLOVIR) [Suspect]
     Active Substance: ACYCLOVIR
     Indication: ORAL PAIN
     Route: 042
  2. ACICLOVIR (ACICLOVIR) [Suspect]
     Active Substance: ACYCLOVIR
     Indication: ODYNOPHAGIA
     Route: 042
  3. LINEZOLID (LINEZOLID) [Concomitant]
     Active Substance: LINEZOLID
  4. ACICLOVIR (ACICLOVIR) [Suspect]
     Active Substance: ACYCLOVIR
     Indication: ORAL HERPES
     Route: 042
  5. CEFEIME (CEFEPIME) [Concomitant]

REACTIONS (7)
  - Neurotoxicity [None]
  - Unresponsive to stimuli [None]
  - Haemodialysis [None]
  - Myoclonus [None]
  - Drug level decreased [None]
  - Depressed level of consciousness [None]
  - Confusional state [None]
